FAERS Safety Report 17250519 (Version 1)
Quarter: 2020Q1

REPORT INFORMATION
  Report Type: Other
  Country: US (occurrence: US)
  Receive Date: 20200109
  Receipt Date: 20200109
  Transmission Date: 20200409
  Serious: Yes (Other)
  Sender: FDA-Public Use
  Company Number: US-SUNRISE PHARMACEUTICAL, INC.-2078706

PATIENT
  Age: 35 Year
  Sex: Male

DRUGS (2)
  1. MORPHINE SULFATE. [Suspect]
     Active Substance: MORPHINE SULFATE
     Route: 065
  2. OXYCODONE HYDROCHLORIDE. [Suspect]
     Active Substance: OXYCODONE HYDROCHLORIDE
     Indication: PRODUCT USED FOR UNKNOWN INDICATION
     Route: 065

REACTIONS (5)
  - Unresponsive to stimuli [Recovered/Resolved]
  - Wrong technique in product usage process [Unknown]
  - Drug abuse [Unknown]
  - Miosis [Unknown]
  - Intentional overdose [Unknown]
